FAERS Safety Report 5534692-0 (Version None)
Quarter: 2007Q4

REPORT INFORMATION
  Report Type: 
  Country: None (occurrence: None)
  Receive Date: 20071205
  Receipt Date: 20071126
  Transmission Date: 20080405
  Serious: Yes (Other)
  Sender: FDA-Public Use
  Company Number: AU-ASTRAZENECA-2007AP07573

PATIENT
  Age: 673 Month
  Sex: Female

DRUGS (6)
  1. ARIMIDEX [Suspect]
     Indication: BREAST CANCER
     Route: 048
     Dates: start: 20070301
  2. COVERSYL [Concomitant]
  3. LEVOTHYROXINE SODIUM [Concomitant]
  4. ISOSORBIDE MONONITRATE [Concomitant]
  5. DIAZEPAM [Concomitant]
  6. ACETAMINOPHEN W/ CODEINE [Concomitant]

REACTIONS (6)
  - AMNESIA [None]
  - DEPRESSION [None]
  - FATIGUE [None]
  - HOT FLUSH [None]
  - MYALGIA [None]
  - PALPITATIONS [None]
